FAERS Safety Report 9071903 (Version 1)
Quarter: 2013Q1

REPORT INFORMATION
  Report Type: Spontaneous
  Country: US (occurrence: US)
  Receive Date: 20130206
  Receipt Date: 20130206
  Transmission Date: 20140127
  Serious: No
  Sender: FDA-Public Use
  Company Number: US-ALLERGAN-1214250US

PATIENT
  Sex: Female

DRUGS (5)
  1. RESTASIS? [Suspect]
     Indication: DRY EYE
     Dosage: 2 GTT, BID
     Route: 047
     Dates: start: 201209, end: 201209
  2. TYROSINT [Concomitant]
     Indication: THYROID DISORDER
  3. NATURAL TEARS [Concomitant]
     Indication: DRY EYE
  4. GELS [Concomitant]
     Indication: DRY EYE
     Route: 047
  5. STEROID INJECTIONS [Concomitant]
     Indication: ARTHRALGIA

REACTIONS (3)
  - Eyelid ptosis [Not Recovered/Not Resolved]
  - Eye discharge [Not Recovered/Not Resolved]
  - Scleral hyperaemia [Not Recovered/Not Resolved]
